FAERS Safety Report 8525483-7 (Version None)
Quarter: 2012Q3

REPORT INFORMATION
  Report Type: 
  Country: None (occurrence: None)
  Receive Date: 20120720
  Receipt Date: 20120712
  Transmission Date: 20120928
  Serious: Yes (Other)
  Sender: FDA-Public Use
  Company Number: US-JNJFOC-20120414267

PATIENT
  Sex: Female
  Weight: 66 kg

DRUGS (10)
  1. REMICADE [Suspect]
     Indication: RHEUMATOID ARTHRITIS
     Route: 042
     Dates: start: 20120427
  2. REMICADE [Suspect]
     Route: 042
     Dates: start: 20120206
  3. REMICADE [Suspect]
     Route: 042
     Dates: start: 20100301
  4. REMICADE [Suspect]
     Route: 042
     Dates: start: 20120206
  5. REMICADE [Suspect]
     Route: 042
     Dates: start: 20120209
  6. REMICADE [Suspect]
     Route: 042
     Dates: start: 20100301
  7. REMICADE [Suspect]
     Route: 042
     Dates: start: 20100225
  8. REMICADE [Suspect]
     Indication: PSORIASIS
     Route: 042
     Dates: start: 20100225
  9. REMICADE [Suspect]
     Route: 042
     Dates: start: 20120209
  10. REMICADE [Suspect]
     Route: 042
     Dates: start: 20120427

REACTIONS (3)
  - ARTHRALGIA [None]
  - MATERNAL EXPOSURE DURING PREGNANCY [None]
  - ABORTION SPONTANEOUS [None]
